FAERS Safety Report 23366343 (Version 1)
Quarter: 2024Q1

REPORT INFORMATION
  Report Type: Spontaneous
  Country: US (occurrence: US)
  Receive Date: 20240104
  Receipt Date: 20240104
  Transmission Date: 20240409
  Serious: No
  Sender: FDA-Public Use
  Company Number: CID000000000043119

PATIENT
  Age: 63 Year

DRUGS (2)
  1. COPAXONE [Suspect]
     Active Substance: GLATIRAMER ACETATE
     Indication: Product used for unknown indication
     Route: 065
  2. ZEPOSIA [Concomitant]
     Active Substance: OZANIMOD HYDROCHLORIDE

REACTIONS (3)
  - Injection site reaction [Unknown]
  - Injection site mass [Unknown]
  - No adverse event [Unknown]
